FAERS Safety Report 4881994-7 (Version None)
Quarter: 2006Q1

REPORT INFORMATION
  Report Type: 
  Country: None (occurrence: None)
  Receive Date: 20060113
  Receipt Date: 20060113
  Transmission Date: 20060701
  Serious: Yes (Hospitalization)
  Sender: FDA-Public Use
  Company Number: None

PATIENT
  Sex: Female
  Weight: 78.0187 kg

DRUGS (5)
  1. REMICADE [Suspect]
     Indication: CROHN'S DISEASE
     Dosage: 800 MG IV Q 2   MONTH
     Route: 042
  2. PENTASA [Concomitant]
  3. FLANYL [Concomitant]
  4. CIPROFLOXACIN [Concomitant]
  5. RANITIDINE [Concomitant]

REACTIONS (4)
  - HYPOKALAEMIA [None]
  - IMMOBILE [None]
  - MUSCULAR WEAKNESS [None]
  - PAIN [None]
